FAERS Safety Report 10356982 (Version 2)
Quarter: 2014Q3

REPORT INFORMATION
  Report Type: Spontaneous
  Country: US (occurrence: US)
  Receive Date: 20140801
  Receipt Date: 20140825
  Transmission Date: 20150326
  Serious: Yes (Death, Life-Threatening, Hospitalization, Other)
  Sender: FDA-Public Use
  Company Number: 2014SP002388

PATIENT
  Age: 75 Year
  Sex: Male

DRUGS (6)
  1. ABILIFY [Concomitant]
     Active Substance: ARIPIPRAZOLE
  2. LATUDA [Suspect]
     Active Substance: LURASIDONE HYDROCHLORIDE
     Indication: PRODUCT USED FOR UNKNOWN INDICATION
     Route: 048
     Dates: start: 20140620, end: 20140706
  3. ZOLOFT [Concomitant]
     Active Substance: SERTRALINE HYDROCHLORIDE
     Indication: PRODUCT USED FOR UNKNOWN INDICATION
  4. LATUDA [Suspect]
     Active Substance: LURASIDONE HYDROCHLORIDE
     Indication: PRODUCT USED FOR UNKNOWN INDICATION
     Route: 048
     Dates: start: 20140716, end: 2014
  5. LATUDA [Suspect]
     Active Substance: LURASIDONE HYDROCHLORIDE
     Indication: PRODUCT USED FOR UNKNOWN INDICATION
     Route: 048
     Dates: start: 20140707, end: 20140715
  6. ZYPREXA [Concomitant]
     Active Substance: OLANZAPINE

REACTIONS (12)
  - Endotracheal intubation [Unknown]
  - Cardiac flutter [Unknown]
  - Medical induction of coma [Unknown]
  - Metabolic disorder [Unknown]
  - Unresponsive to stimuli [Unknown]
  - Renal failure [Unknown]
  - Respiratory failure [Fatal]
  - Mechanical ventilation [Unknown]
  - Pyrexia [Recovered/Resolved]
  - Extrapyramidal disorder [Unknown]
  - Neuroleptic malignant syndrome [Fatal]
  - Blood glucose increased [Unknown]

NARRATIVE: CASE EVENT DATE: 2014
